FAERS Safety Report 10565525 (Version 1)
Quarter: 2014Q4

REPORT INFORMATION
  Report Type: Spontaneous
  Country: US (occurrence: US)
  Receive Date: 20141105
  Receipt Date: 20141105
  Transmission Date: 20150529
  Serious: No
  Sender: FDA-Public Use
  Company Number: US-MYLANLABS-2014M1001906

PATIENT
  Sex: Female

DRUGS (3)
  1. MYCOPHENOLIC ACID DELAYED-RELEASE TABLETS [Suspect]
     Active Substance: MYCOPHENOLIC ACID
     Indication: PANCREAS TRANSPLANT
  2. MYCOPHENOLIC ACID DELAYED-RELEASE TABLETS [Suspect]
     Active Substance: MYCOPHENOLIC ACID
     Dosage: 720 MG, BID
     Route: 048
     Dates: start: 20140414
  3. MYCOPHENOLIC ACID DELAYED-RELEASE TABLETS [Suspect]
     Active Substance: MYCOPHENOLIC ACID
     Indication: RENAL TRANSPLANT

REACTIONS (1)
  - Anovulatory cycle [Not Recovered/Not Resolved]

NARRATIVE: CASE EVENT DATE: 20140814
